FAERS Safety Report 5829241 (Version 2)
Quarter: 2015Q2

REPORT INFORMATION
  Report Type: Report from Study
  Country: LS (occurrence: LS)
  Receive Date: 20050701
  Receipt Date: 20150417
  Transmission Date: 20150821
  Serious: Yes (Death, Hospitalization, Other)
  Sender: FDA-Public Use
  Company Number: LS-BRISTOL-MYERS SQUIBB COMPANY-13019666

PATIENT
  Age: 28 Year
  Sex: Male
  Weight: 49 kg

DRUGS (3)
  1. EFAVIRENZ [Suspect]
     Active Substance: EFAVIRENZ
     Indication: HIV INFECTION
     Dosage: UNK
     Route: 065
     Dates: start: 20041007, end: 20050114
  2. STAVUDINE. [Suspect]
     Active Substance: STAVUDINE
     Indication: HIV INFECTION
     Dosage: UNK
     Route: 065
     Dates: start: 20041007, end: 20050114
  3. LAMIVUDINE. [Suspect]
     Active Substance: LAMIVUDINE
     Indication: HIV INFECTION
     Dosage: UNK
     Route: 065
     Dates: start: 20041007, end: 20050114

REACTIONS (5)
  - Tuberculosis [Unknown]
  - Anaemia [Fatal]
  - Hepatotoxicity [Fatal]
  - Immune reconstitution inflammatory syndrome [Unknown]
  - Jaundice [Unknown]

NARRATIVE: CASE EVENT DATE: 200410
